FAERS Safety Report 18193764 (Version 1)
Quarter: 2020Q3

REPORT INFORMATION
  Report Type: Spontaneous
  Country: US (occurrence: US)
  Receive Date: 20200825
  Receipt Date: 20200825
  Transmission Date: 20201103
  Serious: No
  Sender: FDA-Public Use
  Company Number: US-ROCHE-2274473

PATIENT
  Sex: Male

DRUGS (1)
  1. PEGASYS [Suspect]
     Active Substance: PEGINTERFERON ALFA-2A
     Indication: POLYCYTHAEMIA VERA
     Dosage: FORM STRENGTH: 180 MCG/ML, 1ML SDV
     Route: 058
     Dates: start: 20190226, end: 20190624

REACTIONS (7)
  - Abdominal discomfort [Unknown]
  - White blood cell count increased [Unknown]
  - Hepatic enzyme increased [Unknown]
  - Off label use [Unknown]
  - Arthralgia [Unknown]
  - Gastric disorder [Unknown]
  - Intentional product use issue [Unknown]
